FAERS Safety Report 5867053-5 (Version None)
Quarter: 2008Q3

REPORT INFORMATION
  Report Type: 
  Country: None (occurrence: None)
  Receive Date: 20080902
  Receipt Date: 20080829
  Transmission Date: 20090109
  Serious: Yes (Other)
  Sender: FDA-Public Use
  Company Number: B0531203B

PATIENT
  Sex: Female

DRUGS (9)
  1. SERETIDE [Suspect]
     Indication: ASTHMA
     Dosage: 500MCG TWICE PER DAY
     Route: 055
     Dates: start: 20080118
  2. SINGULAIR [Concomitant]
     Indication: ASTHMA
     Route: 048
     Dates: start: 20080118
  3. MYSLEE [Concomitant]
     Indication: INSOMNIA
     Route: 048
     Dates: start: 20080202
  4. SOLANTAL [Concomitant]
     Indication: HEADACHE
     Route: 048
     Dates: start: 20080202
  5. TALION [Concomitant]
     Indication: SEASONAL ALLERGY
     Route: 048
     Dates: start: 20080215
  6. RIZABEN [Concomitant]
     Indication: SEASONAL ALLERGY
     Route: 031
     Dates: start: 20080215
  7. ERYTHROCIN [Concomitant]
     Indication: NASOPHARYNGITIS
     Route: 048
     Dates: start: 20080728
  8. MEDICON [Concomitant]
     Indication: NASOPHARYNGITIS
     Route: 048
     Dates: start: 20080728
  9. POLARAMINE [Concomitant]
     Indication: NASOPHARYNGITIS
     Route: 048
     Dates: start: 20080728

REACTIONS (1)
  - ASTHMA [None]
